FAERS Safety Report 8093711-0 (Version None)
Quarter: 2012Q1

REPORT INFORMATION
  Report Type: 
  Country: None (occurrence: None)
  Receive Date: 20120129
  Receipt Date: 20111026
  Transmission Date: 20120608
  Serious: No
  Sender: FDA-Public Use
  Company Number: US-ABBOTT-11P-163-0868706-00

PATIENT
  Age: 70 Year
  Sex: Female

DRUGS (8)
  1. HUMIRA [Suspect]
     Indication: CROHN'S DISEASE
     Dates: start: 20110523
  2. PROTONIX [Concomitant]
     Indication: CROHN'S DISEASE
     Dosage: DAILY
  3. ACTONEL [Concomitant]
     Indication: OSTEOPOROSIS
     Dosage: MONTHLY
  4. TRAMADOL HCL [Concomitant]
     Indication: CROHN'S DISEASE
  5. VITAMIN B-12 [Concomitant]
     Indication: VITAMIN B12 DECREASED
  6. VITAMIN D WITH CALCUM [Concomitant]
     Indication: VITAMIN SUPPLEMENTATION
  7. LOMOTIL OTC [Concomitant]
     Indication: DIARRHOEA
  8. ONDANSETRON HCL [Concomitant]
     Indication: NAUSEA

REACTIONS (2)
  - ARTHRALGIA [None]
  - PAIN [None]
